FAERS Safety Report 6426645-5 (Version None)
Quarter: 2009Q4

REPORT INFORMATION
  Report Type: 
  Country: None (occurrence: None)
  Receive Date: 20091104
  Receipt Date: 20091027
  Transmission Date: 20100525
  Serious: Yes (Other)
  Sender: FDA-Public Use
  Company Number: GXKR2009TR11358

PATIENT
  Age: 2 Year
  Sex: Male

DRUGS (1)
  1. VALPROIC ACID (NGX) [Suspect]

REACTIONS (3)
  - CONVULSION [None]
  - EPILEPSY [None]
  - MYOCLONIC EPILEPSY [None]
